FAERS Safety Report 23468269 (Version 2)
Quarter: 2024Q1

REPORT INFORMATION
  Report Type: Report from Study
  Country: US (occurrence: US)
  Receive Date: 20240201
  Receipt Date: 20240305
  Transmission Date: 20240410
  Serious: Yes (Other)
  Sender: FDA-Public Use
  Company Number: US-ABBVIE-5611819

PATIENT
  Sex: Male
  Weight: 95.254 kg

DRUGS (1)
  1. IMBRUVICA [Suspect]
     Active Substance: IBRUTINIB
     Indication: Waldenstrom^s macroglobulinaemia
     Route: 048
     Dates: start: 20220305

REACTIONS (2)
  - Arterial occlusive disease [Unknown]
  - Calcinosis [Unknown]

NARRATIVE: CASE EVENT DATE: 20230101
